FAERS Safety Report 9617761 (Version 1)
Quarter: 2013Q4

REPORT INFORMATION
  Report Type: Spontaneous
  Country: JP (occurrence: JP)
  Receive Date: 20131011
  Receipt Date: 20131011
  Transmission Date: 20140711
  Serious: No
  Sender: FDA-Public Use
  Company Number: JP-ELI_LILLY_AND_COMPANY-JP201310000671

PATIENT
  Sex: Female

DRUGS (3)
  1. ZYPREXA [Suspect]
     Route: 048
  2. ZYPREXA FINE GRANULE 1% [Suspect]
     Dosage: UNK
     Route: 048
     Dates: start: 2013
  3. PLANOVAR [Concomitant]
     Route: 048

REACTIONS (4)
  - Weight increased [Unknown]
  - Genital haemorrhage [Unknown]
  - Somnolence [Unknown]
  - Intentional drug misuse [Not Recovered/Not Resolved]
